FAERS Safety Report 7189796-6 (Version None)
Quarter: 2010Q4

REPORT INFORMATION
  Report Type: 
  Country: None (occurrence: None)
  Receive Date: 20101223
  Receipt Date: 20101216
  Transmission Date: 20110411
  Serious: No
  Sender: FDA-Public Use
  Company Number: US-BIOGENIDEC-2010BI044268

PATIENT
  Sex: Female

DRUGS (2)
  1. TYSABRI [Suspect]
     Indication: MULTIPLE SCLEROSIS
     Route: 042
     Dates: start: 20100129
  2. ACETAMINOPHEN [Concomitant]
     Indication: PREMEDICATION
     Dates: start: 20100129

REACTIONS (7)
  - ABDOMINAL DISCOMFORT [None]
  - CYANOSIS [None]
  - FATIGUE [None]
  - HEADACHE [None]
  - HYPOAESTHESIA [None]
  - MALAISE [None]
  - MEMORY IMPAIRMENT [None]
